FAERS Safety Report 13414891 (Version 3)
Quarter: 2020Q1

REPORT INFORMATION
  Report Type: Spontaneous
  Country: US (occurrence: US)
  Receive Date: 20170406
  Receipt Date: 20200110
  Transmission Date: 20200409
  Serious: No
  Sender: FDA-Public Use
  Company Number: US-JNJFOC-20170319802

PATIENT
  Sex: Male

DRUGS (12)
  1. RISPERIDONE. [Suspect]
     Active Substance: RISPERIDONE
     Dosage: 1 MG IN MORNING, 3 MG AT BEDTIME
     Route: 065
     Dates: start: 20110912, end: 20110918
  2. RISPERDAL CONSTA [Suspect]
     Active Substance: RISPERIDONE
     Indication: SCHIZOPHRENIA
     Route: 030
     Dates: start: 20110913, end: 20111010
  3. RISPERDAL [Suspect]
     Active Substance: RISPERIDONE
     Dosage: 1 MG IN MORNING AND 3 MG AT BEDTIME
     Route: 048
     Dates: start: 20110817
  4. RISPERIDONE. [Suspect]
     Active Substance: RISPERIDONE
     Indication: SCHIZOPHRENIA
     Route: 065
     Dates: start: 20110204, end: 20111002
  5. RISPERIDONE. [Suspect]
     Active Substance: RISPERIDONE
     Route: 065
     Dates: start: 20110204, end: 20110910
  6. RISPERDAL CONSTA [Suspect]
     Active Substance: RISPERIDONE
     Route: 030
     Dates: start: 20111013, end: 20111228
  7. RISPERDAL [Suspect]
     Active Substance: RISPERIDONE
     Indication: SCHIZOPHRENIA
     Route: 048
     Dates: start: 20101217
  8. RISPERIDONE. [Suspect]
     Active Substance: RISPERIDONE
     Route: 065
     Dates: start: 20110923
  9. RISPERIDONE. [Suspect]
     Active Substance: RISPERIDONE
     Dosage: IN VARYING DOSE OF 1 MG AND 3 MG
     Route: 065
     Dates: start: 20110919, end: 20111002
  10. RISPERIDONE. [Suspect]
     Active Substance: RISPERIDONE
     Route: 065
     Dates: end: 2014
  11. RISPERDAL M-TAB [Suspect]
     Active Substance: RISPERIDONE
     Indication: SCHIZOPHRENIA
     Route: 048
     Dates: start: 20111003, end: 20111009
  12. RISPERDAL [Suspect]
     Active Substance: RISPERIDONE
     Route: 048
     Dates: end: 2014

REACTIONS (2)
  - Gynaecomastia [Unknown]
  - Emotional distress [Unknown]
